FAERS Safety Report 18714592 (Version 1)
Quarter: 2021Q1

REPORT INFORMATION
  Report Type: Spontaneous
  Country: US (occurrence: US)
  Receive Date: 20210107
  Receipt Date: 20210107
  Transmission Date: 20210419
  Serious: Yes (Hospitalization, Other)
  Sender: FDA-Public Use
  Company Number: US-NOVOPROD-777988

PATIENT
  Age: 54 Year
  Sex: Female

DRUGS (4)
  1. RYBELSUS [Suspect]
     Active Substance: SEMAGLUTIDE
     Dosage: 7 MG
     Route: 048
     Dates: start: 20201123, end: 2020
  2. RYBELSUS [Suspect]
     Active Substance: SEMAGLUTIDE
     Dosage: 3 MG
     Route: 048
     Dates: start: 2020, end: 2020
  3. RYBELSUS [Suspect]
     Active Substance: SEMAGLUTIDE
     Indication: PRODUCT USED FOR UNKNOWN INDICATION
     Dosage: 3 MG
     Route: 048
     Dates: end: 20201123
  4. INVOKANA [Suspect]
     Active Substance: CANAGLIFLOZIN
     Indication: PRODUCT USED FOR UNKNOWN INDICATION
     Dosage: UNK
     Route: 048
     Dates: end: 2020

REACTIONS (8)
  - Hypothyroidism [Unknown]
  - Vomiting [Unknown]
  - Diarrhoea [Unknown]
  - Thyroid mass [Unknown]
  - Dysuria [Unknown]
  - Decreased appetite [Unknown]
  - Diabetic ketoacidosis [Unknown]
  - Nausea [Unknown]

NARRATIVE: CASE EVENT DATE: 20201224
